FAERS Safety Report 14322137 (Version 1)
Quarter: 2017Q4

REPORT INFORMATION
  Report Type: Report from Study
  Country: RU (occurrence: RU)
  Receive Date: 20171225
  Receipt Date: 20171225
  Transmission Date: 20180321
  Serious: Yes (Hospitalization)
  Sender: FDA-Public Use
  Company Number: RU-ROCHE-2040513

PATIENT
  Sex: Male

DRUGS (4)
  1. MYRCLUDEX B [Suspect]
     Active Substance: MYRCLUDEX B
     Indication: CHRONIC HEPATITIS B
     Route: 048
     Dates: start: 20161004, end: 20170908
  2. MYRCLUDEX B [Suspect]
     Active Substance: MYRCLUDEX B
     Indication: HEPATITIS D
  3. PEG-INTERFERON ALFA 2A [Suspect]
     Active Substance: PEGINTERFERON ALFA-2A
     Indication: HEPATITIS D
  4. PEG-INTERFERON ALFA 2A [Suspect]
     Active Substance: PEGINTERFERON ALFA-2A
     Indication: CHRONIC HEPATITIS B
     Route: 058
     Dates: start: 20161004, end: 20170901

REACTIONS (3)
  - Abscess limb [Not Recovered/Not Resolved]
  - Anal fistula [Recovered/Resolved]
  - Proctitis [Recovered/Resolved with Sequelae]

NARRATIVE: CASE EVENT DATE: 20170911
